FAERS Safety Report 6666340-0 (Version None)
Quarter: 2010Q2

REPORT INFORMATION
  Report Type: 
  Country: None (occurrence: None)
  Receive Date: 20100402
  Receipt Date: 20100325
  Transmission Date: 20101027
  Serious: Yes (Hospitalization)
  Sender: FDA-Public Use
  Company Number: US-RB-002168-10

PATIENT
  Age: 38 Year
  Sex: Female

DRUGS (1)
  1. SUBOXONE [Suspect]
     Route: 060
     Dates: start: 20100103, end: 20100216

REACTIONS (9)
  - ERYTHEMA [None]
  - FEELING HOT [None]
  - INSOMNIA [None]
  - INTERVERTEBRAL DISCITIS [None]
  - IRRITABILITY [None]
  - LUNG DISORDER [None]
  - OEDEMA PERIPHERAL [None]
  - OXYGEN SATURATION DECREASED [None]
  - SPINAL CORD INFECTION [None]
